FAERS Safety Report 20534160 (Version 1)
Quarter: 2022Q1

REPORT INFORMATION
  Report Type: Spontaneous
  Country: US (occurrence: US)
  Receive Date: 20220301
  Receipt Date: 20220301
  Transmission Date: 20220423
  Serious: No
  Sender: FDA-Public Use
  Company Number: US-GLAXOSMITHKLINE-US2022AMR033530

PATIENT
  Sex: Female

DRUGS (3)
  1. ZEJULA [Suspect]
     Active Substance: NIRAPARIB
     Indication: Ovarian cancer
     Dosage: 200 MG, QD
     Route: 048
     Dates: start: 202102
  2. COVID 19 VACCINE [Concomitant]
     Indication: COVID-19 prophylaxis
     Dosage: UNK (1ST DOSE)
  3. COVID 19 VACCINE [Concomitant]
     Dosage: UNK (2ND DOSE)

REACTIONS (2)
  - Constipation [Not Recovered/Not Resolved]
  - Product dose omission in error [Unknown]
